FAERS Safety Report 19997400 (Version 1)
Quarter: 2021Q4

REPORT INFORMATION
  Report Type: Spontaneous
  Country: CN (occurrence: CN)
  Receive Date: 20211026
  Receipt Date: 20211026
  Transmission Date: 20220304
  Serious: Yes (Other)
  Sender: FDA-Public Use
  Company Number: CN-PFIZER INC-202101382865

PATIENT
  Age: 13 Year
  Sex: Male

DRUGS (7)
  1. CYTARABINE [Suspect]
     Active Substance: CYTARABINE
     Indication: Burkitt^s lymphoma
     Dosage: 2 G, 2X/DAY
     Route: 041
     Dates: start: 20211001, end: 20211002
  2. EPIRUBICIN [Suspect]
     Active Substance: EPIRUBICIN
     Indication: Burkitt^s lymphoma
     Dosage: 40 MG, 1X/DAY
     Route: 041
     Dates: start: 20211001, end: 20211002
  3. MABTHERA [Suspect]
     Active Substance: RITUXIMAB
     Indication: Burkitt^s lymphoma
     Dosage: 500 MG, 1X/DAY
     Route: 041
     Dates: start: 20210930, end: 20211001
  4. MABTHERA [Suspect]
     Active Substance: RITUXIMAB
     Dosage: 100 MG, 1X/DAY
     Route: 041
     Dates: start: 20210930, end: 20211001
  5. CYCLOPHOSPHAMIDE [Suspect]
     Active Substance: CYCLOPHOSPHAMIDE
     Indication: Burkitt^s lymphoma
     Dosage: 1.2 G, 1X/DAY
     Route: 041
     Dates: start: 20211001, end: 20211002
  6. VINDESINE SULFATE [Suspect]
     Active Substance: VINDESINE SULFATE
     Indication: Burkitt^s lymphoma
     Dosage: 4 MG, 1X/DAY
     Route: 041
     Dates: start: 20211001, end: 20211002
  7. VINDESINE SULFATE [Suspect]
     Active Substance: VINDESINE SULFATE
     Dosage: 4 MG, 1X/DAY
     Route: 041
     Dates: start: 20211008, end: 20211009

REACTIONS (5)
  - Blood bilirubin increased [Recovering/Resolving]
  - Platelet count decreased [Recovering/Resolving]
  - White blood cell count decreased [Recovering/Resolving]
  - Neutrophil count decreased [Recovering/Resolving]
  - Alanine aminotransferase increased [Recovering/Resolving]

NARRATIVE: CASE EVENT DATE: 20211005
